FAERS Safety Report 4912080-5 (Version None)
Quarter: 2006Q1

REPORT INFORMATION
  Report Type: 
  Country: None (occurrence: None)
  Receive Date: 20060215
  Receipt Date: 20060206
  Transmission Date: 20060701
  Serious: Yes (Other)
  Sender: FDA-Public Use
  Company Number: GB-GILEAD-2006-0009194

PATIENT
  Age: 31 Year
  Sex: Female

DRUGS (3)
  1. TRUVADA [Suspect]
     Indication: HIV INFECTION
     Dates: start: 20050801
  2. REYATAZ [Suspect]
     Indication: HIV INFECTION
     Dates: start: 20050801
  3. RITONAVIR [Suspect]
     Indication: HIV INFECTION
     Dates: start: 20050801

REACTIONS (1)
  - CUSHING'S SYNDROME [None]
